FAERS Safety Report 19307588 (Version 2)
Quarter: 2021Q3

REPORT INFORMATION
  Report Type: Spontaneous
  Country: US (occurrence: US)
  Receive Date: 20210525
  Receipt Date: 20210930
  Transmission Date: 20211014
  Serious: Yes (Hospitalization, Other)
  Sender: FDA-Public Use
  Company Number: US-PURDUE PHARMA-USA-2020-0188528

PATIENT
  Sex: Female

DRUGS (7)
  1. OXYCONTIN [Suspect]
     Active Substance: OXYCODONE HYDROCHLORIDE
     Indication: PAIN
     Dosage: 30 MG, TID (UP TO 1200 MG IN THE PAST)
     Route: 048
     Dates: start: 200001
  2. DURAGESIC [Suspect]
     Active Substance: FENTANYL
     Indication: SCOLIOSIS
     Dosage: UNKNOWN
     Route: 062
  3. DILAUDID [Suspect]
     Active Substance: HYDROMORPHONE HYDROCHLORIDE
     Indication: SCOLIOSIS
     Dosage: 8 MG, DAILY (6 TIMES)
     Route: 048
     Dates: start: 1982
  4. OXYMORPHONE [Suspect]
     Active Substance: OXYMORPHONE
     Indication: SCOLIOSIS
     Dosage: UNKNOWN (SMALL PURPLE PILL)
     Route: 065
  5. HYDROMORPHONE HCL (SIMILAR TO 19?892) [Suspect]
     Active Substance: HYDROMORPHONE HYDROCHLORIDE
     Indication: SCOLIOSIS
     Dosage: UNKNOWN (SMALL PURPLE PILL)
     Route: 065
  6. CLONIDINE. [Suspect]
     Active Substance: CLONIDINE
     Indication: PRODUCT USED FOR UNKNOWN INDICATION
     Dosage: UNKNOWN
     Route: 065
  7. MORPHINE SULFATE (SIMILAR TO NDA 19?516) [Suspect]
     Active Substance: MORPHINE SULFATE
     Indication: SCOLIOSIS
     Dosage: 30 MG, TID (1 TABLET)
     Route: 048
     Dates: start: 2010

REACTIONS (15)
  - Hernia [Unknown]
  - Decreased appetite [Unknown]
  - Suicide attempt [Unknown]
  - Loss of personal independence in daily activities [Unknown]
  - Drug dependence [Unknown]
  - Diarrhoea [Unknown]
  - Sneezing [Unknown]
  - Vomiting [Unknown]
  - Headache [Unknown]
  - Drug withdrawal syndrome [Unknown]
  - Walking aid user [Not Recovered/Not Resolved]
  - Weight decreased [Unknown]
  - Extra dose administered [Unknown]
  - Suicidal ideation [Unknown]
  - Insomnia [Unknown]

NARRATIVE: CASE EVENT DATE: 1985
